FAERS Safety Report 15965153 (Version 1)
Quarter: 2019Q1

REPORT INFORMATION
  Report Type: Spontaneous
  Country: FR (occurrence: FR)
  Receive Date: 20190215
  Receipt Date: 20190215
  Transmission Date: 20190418
  Serious: Yes (Hospitalization)
  Sender: FDA-Public Use
  Company Number: FR-TEVA-2019-FR-1010837

PATIENT
  Age: 77 Year
  Sex: Male
  Weight: 86 kg

DRUGS (3)
  1. PREVISCAN (FLUINDIONE) [Suspect]
     Active Substance: FLUINDIONE
     Indication: ATRIAL FIBRILLATION
     Dosage: 20 MILLIGRAM DAILY;
     Route: 048
     Dates: end: 20181213
  2. COUMADINE [Suspect]
     Active Substance: WARFARIN SODIUM
     Indication: ATRIAL FIBRILLATION
     Dosage: 2 MILLIGRAM DAILY;
     Route: 048
     Dates: start: 20181214, end: 20181218
  3. AMIODARONE (CHLORHYDRATE D^) [Suspect]
     Active Substance: AMIODARONE HYDROCHLORIDE
     Dosage: 200 MILLIGRAM DAILY;

REACTIONS (4)
  - International normalised ratio increased [Recovering/Resolving]
  - Drug interaction [Unknown]
  - Melaena [Recovered/Resolved]
  - Anaemia [Recovering/Resolving]

NARRATIVE: CASE EVENT DATE: 20181215
